FAERS Safety Report 19024605 (Version 1)
Quarter: 2021Q1

REPORT INFORMATION
  Report Type: Spontaneous
  Country: GB (occurrence: GB)
  Receive Date: 20210317
  Receipt Date: 20210317
  Transmission Date: 20210420
  Serious: Yes (Other)
  Sender: FDA-Public Use
  Company Number: GB-ORGANON-O2103GBR001660

PATIENT
  Age: 36 Year
  Sex: Female

DRUGS (1)
  1. NEXPLANON [Suspect]
     Active Substance: ETONOGESTREL
     Indication: CONTRACEPTION
     Dosage: DEVICE, 68 MILLIGRAM
     Route: 059
     Dates: start: 201804

REACTIONS (1)
  - Pregnancy with implant contraceptive [Recovered/Resolved]
